FAERS Safety Report 5925127-4 (Version None)
Quarter: 2008Q4

REPORT INFORMATION
  Report Type: 
  Country: None (occurrence: None)
  Receive Date: 20081021
  Receipt Date: 20081014
  Transmission Date: 20090506
  Serious: Yes (Hospitalization)
  Sender: FDA-Public Use
  Company Number: US-AVENTIS-200815605EU

PATIENT
  Age: 71 Year
  Sex: Male
  Weight: 70.8 kg

DRUGS (7)
  1. LASIX [Suspect]
     Dosage: DOSE: UNK
  2. ALDACTONE [Suspect]
  3. CODE UNBROKEN [Concomitant]
     Dosage: DOSE: 600 MG LD D1 FOLLOWED BY 150 MG FROM D2 TO D7; 75 MG FROM D8 TO 30 OR 300 MG (+PLACEBO) D1 FOL
     Route: 048
     Dates: end: 20080811
  4. ASPIRIN [Concomitant]
     Indication: MYOCARDIAL INFARCTION
     Dosage: DOSE: AT LEAST 300 MG D1; 75-100 MG FROM D2 TO D30
     Route: 048
  5. METFORMIN HYDROCHLORIDE [Concomitant]
  6. LISINOPRIL [Concomitant]
  7. LANTUS [Concomitant]

REACTIONS (2)
  - DEHYDRATION [None]
  - RENAL FAILURE ACUTE [None]
